FAERS Safety Report 21333897 (Version 4)
Quarter: 2022Q4

REPORT INFORMATION
  Report Type: Spontaneous
  Country: US (occurrence: US)
  Receive Date: 20220914
  Receipt Date: 20221115
  Transmission Date: 20230112
  Serious: No
  Sender: FDA-Public Use
  Company Number: US-NOVARTISTESTPH-NVSC2022US206124

PATIENT
  Sex: Female

DRUGS (1)
  1. XIIDRA [Suspect]
     Active Substance: LIFITEGRAST
     Indication: Product used for unknown indication
     Dosage: 5 % (50MG/ML 12X5 - XIIDR LDSO 50MG/ML LDPE 0.2ML (12X5))
     Route: 065
     Dates: start: 20220822

REACTIONS (3)
  - Accidental exposure to product [Unknown]
  - Product container issue [Unknown]
  - Product use complaint [Unknown]
